FAERS Safety Report 14115723 (Version 1)
Quarter: 2017Q4

REPORT INFORMATION
  Report Type: Spontaneous
  Country: FR (occurrence: FR)
  Receive Date: 20171023
  Receipt Date: 20171023
  Transmission Date: 20180321
  Serious: Yes (Hospitalization)
  Sender: FDA-Public Use
  Company Number: FR-PFIZER INC-2017451192

PATIENT
  Age: 88 Year
  Sex: Female

DRUGS (20)
  1. PARACETAMOL [Concomitant]
     Active Substance: ACETAMINOPHEN
     Indication: PAIN MANAGEMENT
     Dosage: 500 MG, THREE TIMES DAILY (EVERY MORNING, NOON AND EVENING)
  2. OMEPRAZOLE. [Concomitant]
     Active Substance: OMEPRAZOLE
     Dosage: 20 MG, ONCE DAILY IN THE EVENING
  3. XANAX [Concomitant]
     Active Substance: ALPRAZOLAM
     Dosage: 0.25MG, TWICE DAILY
     Dates: start: 20170921
  4. KARDEGIC [Concomitant]
     Active Substance: ASPIRIN DL-LYSINE
     Dosage: 1 SACHET (DF), ONCE DAILY AT NOON
  5. ZOLOFT [Concomitant]
     Active Substance: SERTRALINE HYDROCHLORIDE
     Dosage: UNK
     Dates: start: 20170920
  6. LYRICA [Suspect]
     Active Substance: PREGABALIN
     Dosage: 25MG, THREE TIMES DAILY
     Route: 048
     Dates: start: 20170921, end: 20170926
  7. SOTALOL. [Concomitant]
     Active Substance: SOTALOL
     Dosage: 40MG (HALF-TABLET), TWICE DAILY (EVERY MORNING AND EVENING)
  8. LIPANTHYL [Concomitant]
     Active Substance: FENOFIBRATE
     Dosage: 67 MG, ONCE DAILY IN THE EVENING
  9. LEVOTHYROX [Concomitant]
     Active Substance: LEVOTHYROXINE
     Dosage: 75 UG, UNK
  10. OXYNORMORO [Concomitant]
     Active Substance: OXYCODONE HYDROCHLORIDE
     Indication: PAIN
     Dosage: UNK
  11. OXYNORMORO [Concomitant]
     Active Substance: OXYCODONE HYDROCHLORIDE
     Dosage: 5 MG, ONE TO TWO TIMES DAILY
     Dates: start: 20170920
  12. CACIT VITAMIN D3 [Concomitant]
     Active Substance: CALCIUM CARBONATE\CHOLECALCIFEROL
     Dosage: 1 DOSAGE FORM (DF), ONCE DAILY IN THE MORNING
  13. EUTHYRAL [Concomitant]
     Active Substance: LEVOTHYROXINE SODIUM\LIOTHYRONINE SODIUM
     Dosage: 1 DOSAGE FORM (DF), ONCE DAILY IN THE MORNING
  14. LOPERAMIDE [Concomitant]
     Active Substance: LOPERAMIDE
     Dosage: 2MG, ONCE DAILY IN THE MORNING
  15. TANAKAN [Concomitant]
     Active Substance: GINKGO
     Dosage: 40MG, THREE TIMES DAILY (EVERY MORNING, NOON AND EVENING)
  16. VOLTARENE [Concomitant]
     Active Substance: DICLOFENAC SODIUM
     Dosage: 1 CAPSULE (DF), TWICE DAILY (EVERY MORNING AND EVENING)
  17. EXFORGE [Concomitant]
     Active Substance: AMLODIPINE BESYLATE\VALSARTAN
     Dosage: 1 DOSAGE FORM (DF), ONCE DAILY IN THE MORNING
  18. OXYCONTIN [Concomitant]
     Active Substance: OXYCODONE HYDROCHLORIDE
     Dosage: 15MG, TWICE DAILY (EVERY MORNING AND EVENING)
     Dates: start: 20170920
  19. LYRICA [Suspect]
     Active Substance: PREGABALIN
     Indication: PAIN
     Dosage: 50 MG, THREE TIMES DAILY
     Route: 048
     Dates: start: 20170919, end: 20170920
  20. OXYCONTIN [Concomitant]
     Active Substance: OXYCODONE HYDROCHLORIDE
     Indication: PAIN
     Dosage: UNK

REACTIONS (3)
  - Hepatocellular injury [Recovered/Resolved]
  - Somnolence [Unknown]
  - Cholestasis [Recovering/Resolving]

NARRATIVE: CASE EVENT DATE: 20170921
